FAERS Safety Report 5781267-4 (Version None)
Quarter: 2008Q2

REPORT INFORMATION
  Report Type: 
  Country: None (occurrence: None)
  Receive Date: 20080623
  Receipt Date: 20080612
  Transmission Date: 20081010
  Serious: Yes (Hospitalization)
  Sender: FDA-Public Use
  Company Number: CA-JNJFOC-20080403895

PATIENT
  Sex: Female

DRUGS (4)
  1. REMICADE [Suspect]
     Indication: CROHN'S DISEASE
     Dosage: 6TH INFUSION
     Route: 042
  2. VITAMIN B-12 [Concomitant]
     Route: 050
  3. IRON [Concomitant]
     Dosage: 8-10WEEKS
     Route: 042
  4. PERCOCET [Concomitant]

REACTIONS (7)
  - ABASIA [None]
  - BREAST MASS [None]
  - DRUG TOXICITY [None]
  - HYPOAESTHESIA [None]
  - PARAESTHESIA [None]
  - SENSORY LOSS [None]
  - VISION BLURRED [None]
